FAERS Safety Report 11205007 (Version 1)
Quarter: 2015Q2

REPORT INFORMATION
  Report Type: Spontaneous
  Country: US (occurrence: None)
  Receive Date: 20150618
  Receipt Date: 20150618
  Transmission Date: 20150821
  Serious: Yes (Other)
  Sender: FDA-Public Use
  Company Number: None

PATIENT
  Age: 47 Year
  Sex: Female

DRUGS (1)
  1. HUMIRA [Suspect]
     Active Substance: ADALIMUMAB
     Indication: PSORIASIS
     Dates: start: 20150521

REACTIONS (5)
  - Arthralgia [None]
  - Erythema [None]
  - Drug ineffective [None]
  - Condition aggravated [None]
  - Skin lesion [None]

NARRATIVE: CASE EVENT DATE: 20150528
